FAERS Safety Report 9030378 (Version 2)
Quarter: 2014Q4

REPORT INFORMATION
  Report Type: Spontaneous
  Country: MX (occurrence: MX)
  Receive Date: 20130122
  Receipt Date: 20141118
  Transmission Date: 20150529
  Serious: Yes (Death, Other)
  Sender: FDA-Public Use
  Company Number: MX-AMGEN-MEXSP2013003893

PATIENT
  Age: 89 Year
  Sex: Male

DRUGS (1)
  1. XGEVA [Suspect]
     Active Substance: DENOSUMAB
     Indication: PROSTATE CANCER METASTATIC
     Dosage: 120 MG, ONE TIME DOSE
     Route: 065

REACTIONS (2)
  - Prostatic specific antigen increased [Unknown]
  - Atrioventricular block [Fatal]

NARRATIVE: CASE EVENT DATE: 2013
